FAERS Safety Report 15261004 (Version 2)
Quarter: 2019Q1

REPORT INFORMATION
  Report Type: Spontaneous
  Country: FR (occurrence: FR)
  Receive Date: 20180809
  Receipt Date: 20190117
  Transmission Date: 20190417
  Serious: Yes (Death, Hospitalization, Other)
  Sender: FDA-Public Use
  Company Number: PHHY2018FR065816

PATIENT
  Age: 59 Year
  Sex: Male

DRUGS (1)
  1. QGE031 [Suspect]
     Active Substance: LIGELIZUMAB
     Indication: PEMPHIGOID
     Dosage: UNK
     Route: 065
     Dates: start: 20131030, end: 20131115

REACTIONS (7)
  - Death [Fatal]
  - Dyspnoea [Unknown]
  - Mouth haemorrhage [Unknown]
  - Erysipelas [Unknown]
  - Renal failure [Unknown]
  - Cardiac failure [Unknown]
  - Hepatic failure [Unknown]
